FAERS Safety Report 9670311 (Version 2)
Quarter: 2013Q4

REPORT INFORMATION
  Report Type: Spontaneous
  Country: DE (occurrence: DE)
  Receive Date: 20131105
  Receipt Date: 20131108
  Transmission Date: 20140711
  Serious: Yes (Other)
  Sender: FDA-Public Use
  Company Number: DE-GILEAD-2013-0086684

PATIENT
  Age: 37 Year
  Sex: Male

DRUGS (3)
  1. TRUVADA [Suspect]
     Indication: HIV INFECTION
  2. NORVIR [Concomitant]
     Indication: PRODUCT USED FOR UNKNOWN INDICATION
  3. PREZISTA [Concomitant]
     Indication: PRODUCT USED FOR UNKNOWN INDICATION

REACTIONS (2)
  - Ventricular fibrillation [Unknown]
  - Arteriosclerosis [Unknown]
